FAERS Safety Report 9222961 (Version 2)
Quarter: 2013Q2

REPORT INFORMATION
  Report Type: Report from Study
  Country: GB (occurrence: GB)
  Receive Date: 20130410
  Receipt Date: 20130614
  Transmission Date: 20140414
  Serious: Yes (Life-Threatening, Hospitalization, Other)
  Sender: FDA-Public Use
  Company Number: GB-ROCHE-1210400

PATIENT
  Age: 57 Year
  Sex: Male

DRUGS (1)
  1. ALTEPLASE [Suspect]
     Indication: ISCHAEMIC STROKE
     Dosage: 6.3 MG BOLUS OVER 2 MIN FOLLOWED BY AN INFUSION OF 46.7 MG
     Route: 042
     Dates: start: 20090109

REACTIONS (4)
  - Grand mal convulsion [Unknown]
  - Cerebral infarction [Unknown]
  - Brain oedema [Unknown]
  - Procedural haemorrhage [Unknown]
